FAERS Safety Report 15718959 (Version 1)
Quarter: 2018Q4

REPORT INFORMATION
  Report Type: Spontaneous
  Country: AU (occurrence: AU)
  Receive Date: 20181213
  Receipt Date: 20181213
  Transmission Date: 20190205
  Serious: Yes (Life-Threatening, Hospitalization, Other)
  Sender: FDA-Public Use
  Company Number: IND-AU-009507513-1810AUS011773

PATIENT
  Age: 66 Year
  Sex: Male
  Weight: 88 kg

DRUGS (5)
  1. LIDOCAINE. [Concomitant]
     Active Substance: LIDOCAINE
     Route: 042
  2. REMIFENTANIL HYDROCHLORIDE. [Concomitant]
     Active Substance: REMIFENTANIL HYDROCHLORIDE
     Route: 042
  3. SEVOFLURANE. [Concomitant]
     Active Substance: SEVOFLURANE
  4. ESMERON [Suspect]
     Active Substance: ROCURONIUM BROMIDE
     Indication: HYPOTONIA
     Dosage: 30 MILLIGRAM,STAT
     Route: 042
     Dates: start: 20181025, end: 20181025
  5. PROPOFOL. [Concomitant]
     Active Substance: PROPOFOL
     Route: 042

REACTIONS (3)
  - Anaphylactic reaction [Recovered/Resolved]
  - Swelling [Unknown]
  - Blood pressure decreased [Unknown]

NARRATIVE: CASE EVENT DATE: 20181025
